FAERS Safety Report 9155687 (Version 7)
Quarter: 2013Q4

REPORT INFORMATION
  Report Type: Spontaneous
  Country: US (occurrence: US)
  Receive Date: 20130311
  Receipt Date: 20131126
  Transmission Date: 20140711
  Serious: Yes (Hospitalization, Other)
  Sender: FDA-Public Use
  Company Number: US-PFIZER INC-2013036663

PATIENT
  Age: 58 Year
  Sex: Male
  Weight: 119 kg

DRUGS (24)
  1. INLYTA [Suspect]
     Indication: METASTATIC RENAL CELL CARCINOMA
     Dosage: 5 MG, 2X/DAY (EVERY 12 HOURS)
     Route: 048
     Dates: start: 20121228, end: 20130413
  2. INLYTA [Suspect]
     Dosage: 1 MG, 2X/DAY (EVERY 12 HOURS)
     Route: 048
     Dates: start: 201301
  3. INLYTA [Suspect]
     Dosage: 5 MG, 2X/DAY
     Route: 048
     Dates: start: 20130817, end: 20130919
  4. DECADRON [Suspect]
     Dosage: 2 MG, 2X/DAY
  5. DECADRON [Suspect]
     Dosage: 6 MG, 2X/DAY
  6. LOVENOX [Concomitant]
     Indication: PROPHYLAXIS
     Dosage: 30 MG, 2X/DAY
     Route: 058
     Dates: start: 20120517
  7. METHYLCOBALAMIN/MULTIVITAMIN [Concomitant]
     Dosage: 500 UG, 1X/DAY
     Route: 048
     Dates: start: 201207
  8. PANTOPRAZOLE [Concomitant]
     Dosage: 40 MG, 1X/DAY
     Route: 048
     Dates: start: 20121228
  9. NORVASC [Concomitant]
     Dosage: 7.5 MG, 1X/DAY
     Dates: start: 201301
  10. LEVETIRACETAM [Concomitant]
     Dosage: 1500 MG, 2X/DAY
  11. DOCUSATE SODIUM [Concomitant]
     Indication: CONSTIPATION
     Dosage: 100 MG, 3X/DAY
     Route: 048
     Dates: start: 20130611
  12. DOCUSATE SODIUM [Concomitant]
     Dosage: 300 MG, 1X/DAY
     Route: 048
  13. DEXAMETHASONE [Concomitant]
     Dosage: 4 MG, Q6H
     Route: 048
  14. DEXAMETHASONE [Concomitant]
     Dosage: 2 MG, 12 HOUR
     Route: 048
     Dates: start: 20130815
  15. SENNA [Concomitant]
     Dosage: 2 TABLET ORAL BEDTIME NIGHTLY
     Route: 048
  16. SENNA [Concomitant]
     Dosage: 17.2 MG, 1X/DAY (8.6 MG 2 TAB, BEDTIME)
     Route: 048
  17. PHENOBARBITAL [Concomitant]
     Indication: CONVULSION
     Dosage: 30 MG IV Q 6 HOURS.
     Route: 042
     Dates: start: 20130611
  18. AMLODIPINE [Concomitant]
     Dosage: 10 MG, 1X/DAY
     Route: 048
  19. AMLODIPINE [Concomitant]
     Dosage: 5 MG, 1X/DAY, IN THE MORNING
     Route: 048
  20. BYSTOLIC [Concomitant]
     Indication: HYPERTENSION
     Dosage: 5 MG, 1X/DAY
     Route: 048
     Dates: start: 201302
  21. PROTONIX [Concomitant]
     Dosage: 40 MG, 1X/DAY
     Route: 048
     Dates: start: 20121228
  22. MEPRON [Concomitant]
     Indication: INFECTION
     Dosage: 750 ML 2 TSP QD
     Route: 048
     Dates: start: 20130611
  23. MEPRON [Concomitant]
     Dosage: 750 MG, 5 ML (10 ML ORAL DAILY)
     Route: 048
  24. LORAZEPAM [Concomitant]
     Indication: CONVULSION
     Dosage: 0.5 MG, 3X/DAY
     Route: 048

REACTIONS (43)
  - Grand mal convulsion [Recovered/Resolved]
  - Haemorrhage [Unknown]
  - Hemianopia [Not Recovered/Not Resolved]
  - Brain oedema [Recovered/Resolved]
  - Disease progression [Unknown]
  - Metastatic renal cell carcinoma [Unknown]
  - Local swelling [Unknown]
  - Pain [Recovered/Resolved]
  - Pyrexia [Unknown]
  - Joint stiffness [Recovering/Resolving]
  - Dyspnoea exertional [Recovered/Resolved]
  - Dyspnoea [Recovered/Resolved]
  - Nausea [Recovered/Resolved]
  - Vomiting [Recovered/Resolved]
  - Diarrhoea [Unknown]
  - Hypertension [Unknown]
  - Arthralgia [Recovering/Resolving]
  - Fatigue [Recovering/Resolving]
  - Haemoptysis [Unknown]
  - Myalgia [Recovering/Resolving]
  - Weight decreased [Recovered/Resolved]
  - Cough [Unknown]
  - Arthropathy [Unknown]
  - Constipation [Recovered/Resolved]
  - Discomfort [Unknown]
  - Gait disturbance [Recovering/Resolving]
  - VIIth nerve paralysis [Unknown]
  - Aphasia [Unknown]
  - Neuropathy peripheral [Unknown]
  - Myopathy [Unknown]
  - Confusional state [Recovering/Resolving]
  - Memory impairment [Recovering/Resolving]
  - Musculoskeletal disorder [Unknown]
  - Vision blurred [Unknown]
  - Headache [Unknown]
  - Amnesia [Recovering/Resolving]
  - Balance disorder [Unknown]
  - Back pain [Unknown]
  - Dizziness [Unknown]
  - Muscular weakness [Unknown]
  - Sinus polyp [Unknown]
  - Cyst [Unknown]
  - Somnolence [Unknown]
